FAERS Safety Report 6297297-2 (Version None)
Quarter: 2009Q3

REPORT INFORMATION
  Report Type: 
  Country: None (occurrence: None)
  Receive Date: 20090805
  Receipt Date: 20090724
  Transmission Date: 20100115
  Serious: Yes (Life-Threatening, Hospitalization)
  Sender: FDA-Public Use
  Company Number: CH-PFIZER INC-2009245639

PATIENT
  Age: 43 Year

DRUGS (2)
  1. XANAX [Suspect]
     Indication: SUICIDE ATTEMPT
     Dosage: 15 MG, SINGLE
     Route: 048
     Dates: start: 20090303, end: 20090303
  2. METHADONE [Suspect]
     Indication: SUICIDE ATTEMPT
     Dosage: 180 MG, SINGLE
     Route: 048
     Dates: start: 20090303, end: 20090303

REACTIONS (4)
  - COMA [None]
  - ENCEPHALOPATHY [None]
  - MULTI-ORGAN FAILURE [None]
  - SUICIDE ATTEMPT [None]
